FAERS Safety Report 12412981 (Version 2)
Quarter: 2017Q2

REPORT INFORMATION
  Report Type: Spontaneous
  Country: None (occurrence: US)
  Receive Date: 20160527
  Receipt Date: 20170510
  Transmission Date: 20170830
  Serious: Yes (Other)
  Sender: FDA-Public Use
  Company Number: US-SPEAR PHARMACEUTICALS-1052917

PATIENT
  Age: 71 Year
  Sex: Female
  Weight: 90 kg

DRUGS (12)
  1. AMLODIPINE [Concomitant]
     Active Substance: AMLODIPINE BESYLATE
  2. DARVOCET [Concomitant]
     Active Substance: ACETAMINOPHEN\PROPOXYPHENE HYDROCHLORIDE
  3. PRAMIPEXOLE. [Concomitant]
     Active Substance: PRAMIPEXOLE
  4. TEMAZEPAM. [Concomitant]
     Active Substance: TEMAZEPAM
  5. MISOPROSTOL. [Concomitant]
     Active Substance: MISOPROSTOL
  6. BUSPAR [Concomitant]
     Active Substance: BUSPIRONE HYDROCHLORIDE
  7. CYMBALTA [Concomitant]
     Active Substance: DULOXETINE HYDROCHLORIDE
  8. NASACORT [Concomitant]
     Active Substance: TRIAMCINOLONE ACETONIDE
  9. FLOVENT DISKUS [Concomitant]
     Active Substance: FLUTICASONE PROPIONATE
  10. FLUOROURACIL. [Suspect]
     Active Substance: FLUOROURACIL
     Indication: ACTINIC KERATOSIS
     Route: 061
     Dates: start: 20160512, end: 20160521
  11. MONTELUKAST [Concomitant]
     Active Substance: MONTELUKAST SODIUM
  12. RELAFEN [Concomitant]
     Active Substance: NABUMETONE

REACTIONS (3)
  - Arthritis [None]
  - Unevaluable event [Recovering/Resolving]
  - Gait disturbance [None]

NARRATIVE: CASE EVENT DATE: 20160521
